FAERS Safety Report 13403218 (Version 1)
Quarter: 2017Q2

REPORT INFORMATION
  Report Type: Spontaneous
  Country: US (occurrence: US)
  Receive Date: 20170404
  Receipt Date: 20170404
  Transmission Date: 20170830
  Serious: No
  Sender: FDA-Public Use
  Company Number: US-ROCHE-1855231

PATIENT
  Age: 67 Year
  Sex: Female

DRUGS (2)
  1. XELODA [Suspect]
     Active Substance: CAPECITABINE
     Indication: PRODUCT USED FOR UNKNOWN INDICATION
     Route: 065
  2. AVASTIN [Suspect]
     Active Substance: BEVACIZUMAB
     Indication: COLON CANCER
     Route: 065

REACTIONS (6)
  - Dacryostenosis acquired [Unknown]
  - Alopecia [Unknown]
  - Nausea [Unknown]
  - Constipation [Unknown]
  - Pruritus [Unknown]
  - Dry skin [Unknown]
